FAERS Safety Report 8445836-5 (Version None)
Quarter: 2012Q2

REPORT INFORMATION
  Report Type: 
  Country: None (occurrence: None)
  Receive Date: 20120618
  Receipt Date: 20120608
  Transmission Date: 20120825
  Serious: Yes (Other)
  Sender: FDA-Public Use
  Company Number: US-ABBOTT-12P-163-0933273-00

PATIENT
  Age: 67 Year
  Sex: Female

DRUGS (5)
  1. HUMIRA [Suspect]
     Indication: RHEUMATOID ARTHRITIS
  2. HUMIRA [Suspect]
  3. METOPROLOL TARTRATE [Concomitant]
     Indication: BLOOD PRESSURE
  4. GABAPENTIN [Concomitant]
     Indication: PRODUCT USED FOR UNKNOWN INDICATION
  5. TRIAMTERENE [Concomitant]
     Indication: HYPERTENSION
     Dosage: 37.5/25MG DAILY

REACTIONS (12)
  - ARTHRITIS [None]
  - BLOOD PRESSURE INCREASED [None]
  - RHEUMATOID ARTHRITIS [None]
  - STAPHYLOCOCCAL INFECTION [None]
  - PAIN OF SKIN [None]
  - FOOT FRACTURE [None]
  - RASH [None]
  - INCORRECT STORAGE OF DRUG [None]
  - RHEUMATOID NODULE [None]
  - ARTHRALGIA [None]
  - PAIN [None]
  - JOINT SWELLING [None]
